FAERS Safety Report 18487687 (Version 2)
Quarter: 2021Q1

REPORT INFORMATION
  Report Type: Spontaneous
  Country: US (occurrence: US)
  Receive Date: 20201110
  Receipt Date: 20210211
  Transmission Date: 20210419
  Serious: No
  Sender: FDA-Public Use
  Company Number: US-SA-2020SA311832

PATIENT
  Age: 64 Year
  Sex: Male

DRUGS (2)
  1. RETEVMO [Concomitant]
     Active Substance: SELPERCATINIB
     Indication: THYROID CANCER
     Dosage: 150 MG, BID
     Route: 048
     Dates: start: 20201228
  2. CAPRELSA [Suspect]
     Active Substance: VANDETANIB
     Indication: THYROID CANCER
     Dosage: 300 MG, QD
     Route: 048
     Dates: start: 20200924

REACTIONS (2)
  - Dermatitis [Recovering/Resolving]
  - Rash [Unknown]
